FAERS Safety Report 9607620 (Version 1)
Quarter: 2013Q4

REPORT INFORMATION
  Report Type: Report from Study
  Country: US (occurrence: US)
  Receive Date: 20131009
  Receipt Date: 20131009
  Transmission Date: 20140711
  Serious: Yes (Other)
  Sender: FDA-Public Use
  Company Number: PHHY2013US112832

PATIENT
  Age: 24 Year
  Sex: Female
  Weight: 54.32 kg

DRUGS (35)
  1. GILENYA [Suspect]
     Indication: RELAPSING-REMITTING MULTIPLE SCLEROSIS
     Dosage: 0.5 MG, QD
     Route: 048
     Dates: start: 20110318, end: 20121024
  2. ATENOLOL [Concomitant]
     Dosage: 25 MG, UNK
  3. GABAPENTIN [Concomitant]
     Indication: NEURALGIA
     Dosage: 300 MG, TID
     Route: 048
  4. DIAZEPAM [Concomitant]
     Dosage: 2 MG, TID
     Route: 048
  5. SPIRONOLACTON [Concomitant]
     Dosage: 100 MG, QD
     Route: 048
  6. LEVORA-28 [Concomitant]
     Dosage: 1 DF, QD
  7. XALATAN [Concomitant]
     Dosage: 1 DF, QD
  8. BRIMONIDINE [Concomitant]
     Dosage: 1 DF, BID
  9. DORZOLAMIDE [Concomitant]
     Dosage: 1 DF, BID
  10. STOOL SOFTENER [Concomitant]
     Dosage: 100 MG, UNK
  11. MULTICAPS [Concomitant]
  12. PROBIOTICS [Concomitant]
     Dosage: 1 DF, DAILY
     Route: 048
  13. TEGRETOL [Concomitant]
     Dosage: 200 MG, UNK
  14. ADDERALL [Concomitant]
     Indication: FATIGUE
     Dosage: 10 MG, BID
     Route: 048
  15. ELETONE [Concomitant]
     Dosage: 1 DF, QD
     Route: 061
  16. ZYRTEC [Concomitant]
  17. CARBAMAZEPINE [Concomitant]
     Dosage: 100 MG, BID
     Route: 048
  18. MAGNESIUM OXIDE [Concomitant]
     Dosage: 800 MG, BID
     Route: 048
  19. DIMETHYL FUMARATE [Concomitant]
     Dosage: 120 MG, BID
  20. PREDNISONE [Concomitant]
  21. TYLENOL [Concomitant]
  22. PRED FORTE [Concomitant]
  23. ATROPINE [Concomitant]
  24. PREDNISOLONE ACETATE [Concomitant]
     Dosage: 1 DF, QD
  25. ASTEPRO [Concomitant]
     Dosage: 2 DF, BID
  26. COSOPT [Concomitant]
     Dosage: 1 DF, BID
  27. TOBRAMYCIN SULFATE [Concomitant]
  28. LEVOFLOXACIN [Concomitant]
     Dosage: 1 DF, QD
     Route: 048
  29. AMOXICILLIN AND CLAVULANATE POTASSIUM [Concomitant]
     Dosage: 1 DF, UNK
     Route: 048
  30. VIT D [Concomitant]
     Dosage: 1 DF, QW
     Route: 048
  31. TOBREX [Concomitant]
     Dosage: 1 DF, QID
  32. TOBRADEX [Concomitant]
  33. DOXYCYCLINE MONOHYDRATE [Concomitant]
     Dosage: 1 DF, QD
     Route: 048
  34. MOBIC [Concomitant]
     Dosage: 1 DF, QD
     Route: 048
  35. MELOXICAM [Concomitant]

REACTIONS (1)
  - Rectal abscess [Recovered/Resolved]
